FAERS Safety Report 9584843 (Version 3)
Quarter: 2013Q4

REPORT INFORMATION
  Report Type: Spontaneous
  Country: US (occurrence: US)
  Receive Date: 20131002
  Receipt Date: 20131106
  Transmission Date: 20140711
  Serious: No
  Sender: FDA-Public Use
  Company Number: US-AMGEN-USASP2013052378

PATIENT
  Age: 60 Year
  Sex: Female
  Weight: 117.91 kg

DRUGS (9)
  1. ENBREL [Suspect]
     Indication: PSORIATIC ARTHROPATHY
     Dosage: 50 MG, EVERY 80 HOURS
     Route: 058
     Dates: start: 20121210, end: 201307
  2. ENBREL [Suspect]
     Indication: PSORIASIS
  3. LIPITOR [Concomitant]
     Dosage: 20 MG, UNK
  4. CELEBREX [Concomitant]
     Dosage: 200 MG, UNK
  5. BENICAR [Concomitant]
     Dosage: 20 MG, UNK
  6. CO Q 10                            /00517201/ [Concomitant]
     Dosage: 100 MG, UNK
  7. TRIAMCINOLON                       /00031901/ [Concomitant]
     Dosage: 0.025 %, UNK
  8. TACLONEX [Concomitant]
     Dosage: UNK
  9. LORTAB                             /00607101/ [Concomitant]
     Dosage: 5 UNK, UNK

REACTIONS (9)
  - Abdominal pain upper [Unknown]
  - Blister [Unknown]
  - Erythema [Unknown]
  - Skin sensitisation [Unknown]
  - Pain in extremity [Unknown]
  - Skin disorder [Recovered/Resolved]
  - Inappropriate schedule of drug administration [Recovered/Resolved]
  - Herpes zoster [Recovered/Resolved]
  - Psoriasis [Not Recovered/Not Resolved]
